FAERS Safety Report 16151770 (Version 1)
Quarter: 2019Q2

REPORT INFORMATION
  Report Type: Report from Study
  Country: None (occurrence: CO)
  Receive Date: 20190403
  Receipt Date: 20190403
  Transmission Date: 20190711
  Serious: Yes (Hospitalization)
  Sender: FDA-Public Use
  Company Number: CO-ABBVIE-19S-036-2729932-00

PATIENT
  Age: 69 Year
  Sex: Male
  Weight: 55 kg

DRUGS (4)
  1. OMEPRAZOLE. [Concomitant]
     Active Substance: OMEPRAZOLE
     Indication: PRODUCT USED FOR UNKNOWN INDICATION
  2. AMLODIPINE [Concomitant]
     Active Substance: AMLODIPINE BESYLATE
     Indication: PRODUCT USED FOR UNKNOWN INDICATION
  3. ZEMPLAR [Suspect]
     Active Substance: PARICALCITOL
     Indication: HYPERPARATHYROIDISM SECONDARY
     Route: 042
     Dates: start: 20170116, end: 20190307
  4. CALCIUM CARBONATE. [Concomitant]
     Active Substance: CALCIUM CARBONATE
     Indication: PRODUCT USED FOR UNKNOWN INDICATION

REACTIONS (1)
  - Urinary tract infection [Recovering/Resolving]

NARRATIVE: CASE EVENT DATE: 20190314
